FAERS Safety Report 25259379 (Version 1)
Quarter: 2025Q2

REPORT INFORMATION
  Report Type: Spontaneous
  Country: JP (occurrence: JP)
  Receive Date: 20250501
  Receipt Date: 20250501
  Transmission Date: 20250717
  Serious: Yes (Life-Threatening, Hospitalization)
  Sender: GALPHARM INTERNATIONAL
  Company Number: JP-MLMSERVICE-20250418-PI484638-00030-1

PATIENT
  Age: 60 Year
  Sex: Female

DRUGS (1)
  1. IBUPROFEN [Suspect]
     Active Substance: IBUPROFEN
     Indication: Product used for unknown indication
     Route: 048

REACTIONS (3)
  - Toxic epidermal necrolysis [Recovering/Resolving]
  - Obliterative bronchiolitis [Not Recovered/Not Resolved]
  - Respiratory failure [Not Recovered/Not Resolved]
